FAERS Safety Report 24962620 (Version 2)
Quarter: 2025Q2

REPORT INFORMATION
  Report Type: Spontaneous
  Country: DE (occurrence: DE)
  Receive Date: 20250212
  Receipt Date: 20250430
  Transmission Date: 20250716
  Serious: Yes (Life-Threatening, Hospitalization, Other)
  Sender: VIIV
  Company Number: DE-VIIV HEALTHCARE-DE2025EME016285

PATIENT

DRUGS (14)
  1. VOCABRIA [Suspect]
     Active Substance: CABOTEGRAVIR SODIUM
     Indication: HIV infection
     Dosage: 600 MG, Q2M
     Route: 030
     Dates: start: 2022
  2. VOCABRIA [Suspect]
     Active Substance: CABOTEGRAVIR SODIUM
  3. VOCABRIA [Suspect]
     Active Substance: CABOTEGRAVIR SODIUM
  4. RILPIVIRINE [Suspect]
     Active Substance: RILPIVIRINE
     Indication: HIV infection
     Dosage: 900 MG, Q2M
     Route: 030
     Dates: start: 2022
  5. METHADONE [Concomitant]
     Active Substance: METHADONE HYDROCHLORIDE
     Indication: Product used for unknown indication
  6. METHADONE [Concomitant]
     Active Substance: METHADONE HYDROCHLORIDE
     Indication: Opiates
     Dosage: 600 MG, QD
     Dates: start: 20230627
  7. METAMIZOLE [Concomitant]
     Active Substance: METAMIZOLE
     Indication: Pain
     Dosage: 1000 MG, QID
     Dates: start: 20241111, end: 20250221
  8. PANTOPRAZOLE SODIUM [Concomitant]
     Active Substance: PANTOPRAZOLE SODIUM
     Indication: Product used for unknown indication
     Dosage: 40 MG, BID, REDUCTION TO 1-0-0 AFTER 4
  9. TORSEMIDE [Concomitant]
     Active Substance: TORSEMIDE
     Indication: Product used for unknown indication
  10. Novalgin [Concomitant]
     Indication: Product used for unknown indication
     Dosage: 500 MG, QID
  11. LEVOMETHADONE HYDROCHLORIDE [Concomitant]
     Active Substance: LEVOMETHADONE HYDROCHLORIDE
     Indication: Pain
     Dosage: 60 MG (5 MG/ML)
  12. ALBUTEROL SULFATE\IPRATROPIUM BROMIDE [Concomitant]
     Active Substance: ALBUTEROL SULFATE\IPRATROPIUM BROMIDE
     Indication: Product used for unknown indication
     Dosage: 2.5 ML, QID, NEBULIZATION
  13. ATORVASTATIN [Concomitant]
     Active Substance: ATORVASTATIN
     Indication: Hypercholesterolaemia
     Dosage: 20 MG, QD
     Dates: start: 20240925, end: 20250311
  14. ASPIRIN [Concomitant]
     Active Substance: ASPIRIN
     Indication: Coagulopathy
     Dosage: 100 MG, QD
     Dates: start: 20240925

REACTIONS (17)
  - Leukopenia [Recovered/Resolved]
  - Pneumocystis jirovecii infection [Recovered/Resolved]
  - Arteriosclerosis coronary artery [Unknown]
  - Substance dependence [Unknown]
  - Pneumonia [Unknown]
  - Acquired immunodeficiency syndrome [Unknown]
  - Hypertension [Unknown]
  - Atypical pneumonia [Unknown]
  - Herpes simplex [Unknown]
  - Chronic obstructive pulmonary disease [Unknown]
  - General physical health deterioration [Unknown]
  - Tooth abscess [Unknown]
  - Lymphopenia [Unknown]
  - Abscess [Unknown]
  - Pulmonary mass [Unknown]
  - Rib fracture [Unknown]
  - Haemoptysis [Unknown]

NARRATIVE: CASE EVENT DATE: 20231202
